FAERS Safety Report 24230978 (Version 1)
Quarter: 2024Q3

REPORT INFORMATION
  Report Type: Spontaneous
  Country: US (occurrence: US)
  Receive Date: 20240821
  Receipt Date: 20240821
  Transmission Date: 20241016
  Serious: Yes (Death, Other)
  Sender: DR REDDYS
  Company Number: US-DRL-USA-LIT/USA/24/0011816

PATIENT
  Age: 12 Year
  Sex: Male

DRUGS (2)
  1. POSACONAZOLE [Suspect]
     Active Substance: POSACONAZOLE
     Indication: Antifungal prophylaxis
     Dosage: VIA NASOGASTRIC TUBE EVERY MORNING
  2. POSACONAZOLE [Suspect]
     Active Substance: POSACONAZOLE
     Dosage: VIA NASOGASTRIC TUBE EVERY EVENING

REACTIONS (3)
  - Death [Fatal]
  - Drug level below therapeutic [Unknown]
  - Wrong technique in product usage process [Unknown]
